APPROVED DRUG PRODUCT: SODIUM CHLORIDE 0.9%
Active Ingredient: SODIUM CHLORIDE
Strength: 90MG/10ML (9MG/ML)
Dosage Form/Route: SOLUTION;INJECTION
Application: N019635 | Product #005
Applicant: B BRAUN MEDICAL INC
Approved: Aug 8, 2016 | RLD: Yes | RS: No | Type: RX